FAERS Safety Report 8219108-8 (Version None)
Quarter: 2012Q1

REPORT INFORMATION
  Report Type: 
  Country: None (occurrence: None)
  Receive Date: 20120319
  Receipt Date: 20120309
  Transmission Date: 20120608
  Serious: Yes (Hospitalization, Other)
  Sender: FDA-Public Use
  Company Number: US-JNJFOC-20120106918

PATIENT
  Sex: Male
  Weight: 83.92 kg

DRUGS (2)
  1. SAW PALMETTO [Interacting]
     Indication: PROSTATOMEGALY
  2. XARELTO [Suspect]
     Indication: THROMBOSIS PROPHYLAXIS
     Route: 065
     Dates: start: 20120104, end: 20120112

REACTIONS (3)
  - HAEMORRHAGE [None]
  - DRUG INTERACTION [None]
  - HAEMATOMA [None]
